FAERS Safety Report 9644063 (Version 1)
Quarter: 2013Q4

REPORT INFORMATION
  Report Type: Spontaneous
  Country: GB (occurrence: GB)
  Receive Date: 20131024
  Receipt Date: 20131024
  Transmission Date: 20140711
  Serious: Yes (Life-Threatening)
  Sender: FDA-Public Use
  Company Number: GB-MYLANLABS-2013S1023313

PATIENT
  Age: 34 Year
  Sex: Male
  Weight: 95 kg

DRUGS (2)
  1. AZATHIOPRINE [Suspect]
     Indication: ECZEMA
     Route: 048
     Dates: start: 20130909, end: 20130909
  2. ANTIHISTAMINES [Concomitant]
     Indication: PRODUCT USED FOR UNKNOWN INDICATION

REACTIONS (1)
  - Hypersensitivity [Recovered/Resolved]
